FAERS Safety Report 6630964-7 (Version None)
Quarter: 2010Q1

REPORT INFORMATION
  Report Type: 
  Country: None (occurrence: None)
  Receive Date: 20100309
  Receipt Date: 20100303
  Transmission Date: 20100710
  Serious: Yes (Hospitalization)
  Sender: FDA-Public Use
  Company Number: DSA_42690_2010

PATIENT
  Sex: Female

DRUGS (1)
  1. XENAZINE [Suspect]
     Indication: MEIGE'S SYNDROME
     Dosage: (DF ORAL)
     Route: 048
     Dates: end: 20100302

REACTIONS (2)
  - ASTHENIA [None]
  - DYSSTASIA [None]
